FAERS Safety Report 6596861-0 (Version None)
Quarter: 2010Q1

REPORT INFORMATION
  Report Type: 
  Country: None (occurrence: None)
  Receive Date: 20100222
  Receipt Date: 20100222
  Transmission Date: 20100710
  Serious: Yes (Life-Threatening, Hospitalization)
  Sender: FDA-Public Use
  Company Number: None

PATIENT
  Age: 21 Year
  Sex: Female
  Weight: 63.5036 kg

DRUGS (4)
  1. ADDERALL XR 10 [Suspect]
     Indication: ATTENTION DEFICIT/HYPERACTIVITY DISORDER
     Dosage: 25MG 1/DAY PO
     Route: 048
     Dates: start: 20080430, end: 20090713
  2. AMPHETAMINE SALT [Suspect]
     Dosage: 10MG 3/DAY PO
     Route: 048
  3. ADDERALL XR 10 [Concomitant]
  4. ADDERALL -AMPHETAMINE SALTS- [Concomitant]

REACTIONS (2)
  - DRUG DEPENDENCE [None]
  - URTICARIA [None]
